FAERS Safety Report 21085843 (Version 2)
Quarter: 2022Q3

REPORT INFORMATION
  Report Type: Spontaneous
  Country: JP (occurrence: JP)
  Receive Date: 20220715
  Receipt Date: 20220906
  Transmission Date: 20221027
  Serious: Yes (Other)
  Sender: FDA-Public Use
  Company Number: JP-BEH-2022147289

PATIENT
  Age: 56 Year
  Sex: Male
  Weight: 51 kg

DRUGS (3)
  1. HIZENTRA [Suspect]
     Active Substance: HUMAN IMMUNOGLOBULIN G
     Indication: Chronic inflammatory demyelinating polyradiculoneuropathy
     Dosage: 20 GRAM, QW
     Route: 058
     Dates: start: 20201228, end: 20210828
  2. PREDNISOLONE [Concomitant]
     Active Substance: PREDNISOLONE
     Dosage: 20 MILLIGRAM, QD
     Route: 048
  3. CYCLOSPORINE [Concomitant]
     Active Substance: CYCLOSPORINE
     Dosage: 100 MILLIGRAM, QD

REACTIONS (2)
  - Chronic inflammatory demyelinating polyradiculoneuropathy [Recovering/Resolving]
  - Therapy interrupted [Recovering/Resolving]
